FAERS Safety Report 12154691 (Version 2)
Quarter: 2018Q1

REPORT INFORMATION
  Report Type: Spontaneous
  Country: US (occurrence: US)
  Receive Date: 20160307
  Receipt Date: 20180329
  Transmission Date: 20180508
  Serious: Yes (Life-Threatening, Hospitalization)
  Sender: FDA-Public Use
  Company Number: US-UNITED THERAPEUTICS-UNT-2016-003331

PATIENT
  Age: 63 Year
  Sex: Female
  Weight: 125.62 kg

DRUGS (1)
  1. TYVASO [Suspect]
     Active Substance: TREPROSTINIL
     Indication: PULMONARY ARTERIAL HYPERTENSION
     Dosage: 18-54 ?G, QID
     Dates: start: 20121115

REACTIONS (5)
  - Thermal burn [Unknown]
  - Headache [Unknown]
  - Amnesia [Unknown]
  - Overdose [Unknown]
  - Arrhythmia [Unknown]

NARRATIVE: CASE EVENT DATE: 201602
